FAERS Safety Report 9530812 (Version 1)
Quarter: 2013Q3

REPORT INFORMATION
  Report Type: Spontaneous
  Country: US (occurrence: None)
  Receive Date: 20130916
  Receipt Date: 20130916
  Transmission Date: 20140515
  Serious: Yes (Other)
  Sender: FDA-Public Use
  Company Number: None

PATIENT
  Sex: Female
  Weight: 56.8 kg

DRUGS (12)
  1. AZITHROMYCIN [Suspect]
     Dates: start: 20130520
  2. COREG [Concomitant]
  3. COLESEVELAM [Concomitant]
  4. ENOXAPARIN [Concomitant]
  5. ESCITALOPRAM [Concomitant]
  6. FUROSEMIDE [Concomitant]
  7. LACTOBACILLUS [Concomitant]
  8. MULTIVITAMIN [Concomitant]
  9. POTASSIUM CHOLORIDE [Concomitant]
  10. SIMVASTATIN [Concomitant]
  11. ACETAMINOPHEN [Concomitant]
  12. CEFTRIAXONE [Concomitant]

REACTIONS (6)
  - Cardiac failure congestive [None]
  - Pneumonia [None]
  - Pulmonary embolism [None]
  - Electrocardiogram QT prolonged [None]
  - Blood urea increased [None]
  - Blood creatinine increased [None]
